FAERS Safety Report 13626602 (Version 2)
Quarter: 2017Q3

REPORT INFORMATION
  Report Type: Spontaneous
  Country: US (occurrence: US)
  Receive Date: 20170608
  Receipt Date: 20170712
  Transmission Date: 20171127
  Serious: No
  Sender: FDA-Public Use
  Company Number: US-ALKABELLO-2017AA001787

PATIENT
  Age: 37 Year
  Sex: Female

DRUGS (14)
  1. TAE BULK (402) ALTERNARIA ALTERNATA [Suspect]
     Active Substance: ALTERNARIA ALTERNATA
  2. TAE BULK (1151) JUGLANS NIGRA [Suspect]
     Active Substance: JUGLANS NIGRA POLLEN
  3. STAE BULK (504) DERMATOPHAGOIDES FARINAE [Suspect]
     Active Substance: DERMATOPHAGOIDES FARINAE
  4. TAE BULK (1199) ARTEMISIA TRIDENTATA [Suspect]
     Active Substance: ARTEMISIA TRIDENTATA POLLEN
  5. TAE BULK (265) BIRD MIX [Suspect]
     Active Substance: ANAS PLATYRHYNCHOS FEATHER\ANSER ANSER FEATHER\GALLUS GALLUS FEATHER
  6. TAE BULK (1320) ACREMONIUM STRICTUM [Suspect]
     Active Substance: ACREMONIUM STRICTUM
  7. TAE BULK (361) SALSOLA KALI [Suspect]
     Active Substance: SALSOLA KALI POLLEN
  8. TAE BULK (358) RUMEX ACETOSELLA [Suspect]
     Active Substance: RUMEX ACETOSELLA POLLEN
  9. STAE BULK (225) PHLEUM PRATENSE [Suspect]
     Active Substance: PHLEUM PRATENSE POLLEN
  10. TAE BULK (342) PLANTAGO LANCEOLATA [Suspect]
     Active Substance: PLANTAGO LANCEOLATA LEAF
  11. STAE BULK (503) DERMATOPHAGOIDES PTERONYSSINUS [Suspect]
     Active Substance: DERMATOPHAGOIDES PTERONYSSINUS
  12. STAE BULK (555) FELIS DOMESTICUS [Suspect]
     Active Substance: FELIS CATUS HAIR
  13. TAE BULK (1138) ACER RUBRUM [Suspect]
     Active Substance: ACER RUBRUM POLLEN
  14. TAE BULK (367) KOCHIA SCOPARIA [Suspect]
     Active Substance: BASSIA SCOPARIA POLLEN

REACTIONS (5)
  - Eustachian tube dysfunction [Unknown]
  - Laryngitis [Unknown]
  - Drug monitoring procedure not performed [Unknown]
  - Product storage error [Unknown]
  - Drug administration error [Unknown]
